FAERS Safety Report 10714100 (Version 1)
Quarter: 2015Q1

REPORT INFORMATION
  Report Type: Spontaneous
  Country: FR (occurrence: FR)
  Receive Date: 20150115
  Receipt Date: 20150115
  Transmission Date: 20150721
  Serious: Yes (Hospitalization, Other)
  Sender: FDA-Public Use
  Company Number: FR-ELI_LILLY_AND_COMPANY-FR201501002010

PATIENT
  Age: 76 Year
  Sex: Female

DRUGS (7)
  1. TRAMADOL [Concomitant]
     Active Substance: TRAMADOL
     Dosage: UNK, UNKNOWN
  2. GEMZAR [Suspect]
     Active Substance: GEMCITABINE HYDROCHLORIDE
     Dosage: 1064 MG, CYCLICAL
     Route: 042
     Dates: start: 20141029
  3. OXYCONTIN [Concomitant]
     Active Substance: OXYCODONE HYDROCHLORIDE
     Dosage: 2 DF, QD
     Route: 065
     Dates: start: 20141029
  4. INNOHEP [Concomitant]
     Active Substance: TINZAPARIN SODIUM
     Indication: SPLENIC VEIN THROMBOSIS
     Dosage: UNK, UNKNOWN
     Dates: start: 201402
  5. LOVENOX [Concomitant]
     Active Substance: ENOXAPARIN SODIUM
     Indication: PROPHYLAXIS
     Dosage: UNK, UNKNOWN
     Dates: start: 20141105, end: 20141110
  6. GEMZAR [Suspect]
     Active Substance: GEMCITABINE HYDROCHLORIDE
     Indication: PANCREATIC CARCINOMA
     Dosage: UNK UNK, CYCLICAL
     Route: 042
     Dates: start: 20140521
  7. OXYNORM [Concomitant]
     Active Substance: OXYCODONE HYDROCHLORIDE
     Dosage: 5 MG, PRN
     Route: 065
     Dates: start: 20141029

REACTIONS (4)
  - Thrombocytopenia [Recovered/Resolved]
  - Neutropenia [Recovered/Resolved]
  - Disease progression [Unknown]
  - Subileus [Unknown]

NARRATIVE: CASE EVENT DATE: 201406
